FAERS Safety Report 12625284 (Version 1)
Quarter: 2016Q3

REPORT INFORMATION
  Report Type: Spontaneous
  Country: US (occurrence: US)
  Receive Date: 20160805
  Receipt Date: 20160805
  Transmission Date: 20161109
  Serious: No
  Sender: FDA-Public Use
  Company Number: US-LYNE LABORATORIES INC.-1055903

PATIENT
  Age: 66 Year
  Sex: Male
  Weight: 84.09 kg

DRUGS (1)
  1. TRIAMCINOLONE ACETONIDE. [Suspect]
     Active Substance: TRIAMCINOLONE ACETONIDE
     Indication: CYST
     Route: 004
     Dates: start: 20150701

REACTIONS (2)
  - Drug ineffective [Not Recovered/Not Resolved]
  - Salivary hypersecretion [None]

NARRATIVE: CASE EVENT DATE: 20150706
